FAERS Safety Report 21548336 (Version 1)
Quarter: 2022Q4

REPORT INFORMATION
  Report Type: Spontaneous
  Country: US (occurrence: None)
  Receive Date: 20221102
  Receipt Date: 20221102
  Transmission Date: 20230113
  Serious: Yes (Hospitalization)
  Sender: FDA-Public Use
  Company Number: None

PATIENT
  Sex: Male

DRUGS (1)
  1. STELARA [Suspect]
     Active Substance: USTEKINUMAB
     Indication: Crohn^s disease
     Dosage: OTHER FREQUENCY : Q 8WKS;?
     Route: 058
     Dates: start: 20201104

REACTIONS (4)
  - Condition aggravated [None]
  - Abdominal symptom [None]
  - Gastrointestinal disorder [None]
  - Clostridium difficile infection [None]
